FAERS Safety Report 7157721-X (Version None)
Quarter: 2010Q4

REPORT INFORMATION
  Report Type: 
  Country: None (occurrence: None)
  Receive Date: 20101214
  Receipt Date: 20100222
  Transmission Date: 20110411
  Serious: No
  Sender: FDA-Public Use
  Company Number: US-ASTRAZENECA-2010SE04266

PATIENT
  Age: 45 Year
  Sex: Male
  Weight: 77.6 kg

DRUGS (4)
  1. CRESTOR [Suspect]
     Indication: BLOOD CHOLESTEROL
     Route: 048
     Dates: start: 20090730
  2. CRESTOR [Suspect]
     Route: 048
     Dates: start: 20091101, end: 20091201
  3. AVAPRO [Concomitant]
     Indication: BLOOD PRESSURE
     Route: 048
     Dates: start: 20091101
  4. ALLEGRA [Concomitant]
     Indication: CARDIOVASCULAR EVENT PROPHYLAXIS
     Route: 048
     Dates: start: 20080801

REACTIONS (3)
  - BLOOD GLUCOSE INCREASED [None]
  - GLYCOSYLATED HAEMOGLOBIN INCREASED [None]
  - INSULIN TOLERANCE TEST ABNORMAL [None]
